FAERS Safety Report 8630179 (Version 4)
Quarter: 2014Q2

REPORT INFORMATION
  Report Type: Spontaneous
  Country: US (occurrence: US)
  Receive Date: 20120622
  Receipt Date: 20140507
  Transmission Date: 20141212
  Serious: Yes (Hospitalization, Disabling, Other)
  Sender: FDA-Public Use
  Company Number: US-ASTRAZENECA-2012SE36223

PATIENT
  Age: 58 Year
  Sex: Female
  Weight: 88 kg

DRUGS (21)
  1. NEXIUM [Suspect]
     Indication: GASTROOESOPHAGEAL REFLUX DISEASE
     Dosage: ONCE
     Route: 048
     Dates: start: 1990
  2. NEXIUM [Suspect]
     Indication: GASTROOESOPHAGEAL REFLUX DISEASE
     Route: 048
     Dates: start: 20020508
  3. PROTONIX [Concomitant]
     Dates: start: 20001121
  4. PROTONIX [Concomitant]
     Route: 048
     Dates: start: 20010827
  5. TOPROL XL [Concomitant]
     Dates: start: 20010320
  6. TOPROL XL [Concomitant]
     Route: 048
     Dates: start: 20010914
  7. LOSARTAN POTASSIUM [Concomitant]
     Route: 048
     Dates: start: 20110725
  8. LOSARTAN POTASSIUM [Concomitant]
     Dates: start: 20120315
  9. FLUOXETINE HCL [Concomitant]
     Route: 048
     Dates: start: 20110601
  10. PREVACID [Concomitant]
     Dates: start: 1980
  11. CYMBALTA [Concomitant]
     Indication: DEPRESSION
  12. CYMBALTA [Concomitant]
     Indication: DEPRESSION
     Dates: start: 20111101
  13. METOPROLOL SUCC [Concomitant]
     Dates: start: 20081210
  14. ALPRAZOLAM [Concomitant]
     Dates: start: 20081216
  15. LYRICA [Concomitant]
     Dates: start: 20081216
  16. HYDROCHLOROTHIAZIDE [Concomitant]
     Dates: start: 20081221
  17. LISINOPRIL [Concomitant]
     Dates: start: 20110402
  18. NAPROXEN [Concomitant]
  19. OMEPRAZOLE [Concomitant]
     Dates: start: 2011
  20. TRAMADOL [Concomitant]
     Dates: start: 20130409
  21. WARFARIN [Concomitant]
     Dates: start: 20131004

REACTIONS (8)
  - Tibia fracture [Unknown]
  - Fall [Unknown]
  - Lower limb fracture [Unknown]
  - Upper limb fracture [Unknown]
  - Humerus fracture [Unknown]
  - Osteoporosis [Unknown]
  - Arthritis [Unknown]
  - Depression [Unknown]
